FAERS Safety Report 16013866 (Version 3)
Quarter: 2019Q2

REPORT INFORMATION
  Report Type: Spontaneous
  Country: DE (occurrence: DE)
  Receive Date: 20190227
  Receipt Date: 20190528
  Transmission Date: 20190711
  Serious: Yes (Other)
  Sender: FDA-Public Use
  Company Number: DE-PFIZER INC-2019081666

PATIENT
  Age: 64 Year
  Sex: Female
  Weight: 58 kg

DRUGS (6)
  1. FASLODEX [Suspect]
     Active Substance: FULVESTRANT
     Route: 030
  2. EXEMESTAN [Concomitant]
     Active Substance: EXEMESTANE
  3. LYNPARZA [Suspect]
     Active Substance: OLAPARIB
     Indication: BREAST CANCER METASTATIC
     Dosage: 200 MG, UNK
     Route: 048
     Dates: start: 20181025, end: 20181124
  4. LYNPARZA [Suspect]
     Active Substance: OLAPARIB
     Dosage: 100 UNK, UNK
     Route: 048
     Dates: start: 20181218, end: 20190102
  5. PALBOCICLIB [Suspect]
     Active Substance: PALBOCICLIB
     Route: 048
  6. OLAPARIB. [Suspect]
     Active Substance: OLAPARIB
     Indication: BREAST CANCER METASTATIC
     Route: 048
     Dates: start: 20181101

REACTIONS (26)
  - Pleural effusion [Unknown]
  - Ascites [Unknown]
  - Oedema peripheral [Recovering/Resolving]
  - Blood alkaline phosphatase increased [Unknown]
  - Hyponatraemia [Recovered/Resolved]
  - Neoplasm progression [Unknown]
  - Gamma-glutamyltransferase increased [Unknown]
  - Back pain [Unknown]
  - Aspartate aminotransferase increased [Unknown]
  - Pericardial effusion [Unknown]
  - Transaminases increased [Unknown]
  - Platelet count increased [Unknown]
  - Bronchitis [Unknown]
  - Gastrointestinal hypomotility [Unknown]
  - Off label use [Unknown]
  - Alanine aminotransferase increased [Unknown]
  - General physical health deterioration [Recovering/Resolving]
  - Hypokalaemia [Recovered/Resolved]
  - Osteonecrosis of jaw [Unknown]
  - Decreased appetite [Unknown]
  - Anaemia [Not Recovered/Not Resolved]
  - Dyspnoea [Unknown]
  - Asthenia [Recovering/Resolving]
  - Tachycardia [Unknown]
  - Cardiac failure [Unknown]
  - Cardiovascular disorder [Unknown]

NARRATIVE: CASE EVENT DATE: 20180921
